FAERS Safety Report 15784001 (Version 1)
Quarter: 2019Q1

REPORT INFORMATION
  Report Type: Spontaneous
  Country: US (occurrence: US)
  Receive Date: 20190103
  Receipt Date: 20190103
  Transmission Date: 20190417
  Serious: No
  Sender: FDA-Public Use
  Company Number: US-UNITED THERAPEUTICS-UNT-2018-017857

PATIENT
  Sex: Female
  Weight: 117.91 kg

DRUGS (4)
  1. REVATIO [Concomitant]
     Active Substance: SILDENAFIL CITRATE
     Indication: PRODUCT USED FOR UNKNOWN INDICATION
     Route: 065
  2. REMODULIN [Suspect]
     Active Substance: TREPROSTINIL
     Indication: PULMONARY ARTERIAL HYPERTENSION
     Dosage: 0.015 ?G/KG, CONTINUING
     Route: 058
     Dates: start: 20180822
  3. REMODULIN [Suspect]
     Active Substance: TREPROSTINIL
     Dosage: 0.0225 ?G/KG, CONTINUING
     Route: 058
  4. OPSUMIT [Concomitant]
     Active Substance: MACITENTAN
     Indication: PRODUCT USED FOR UNKNOWN INDICATION
     Route: 065

REACTIONS (8)
  - Dizziness [Not Recovered/Not Resolved]
  - Vomiting [Unknown]
  - Infusion site erythema [Not Recovered/Not Resolved]
  - Infusion site discharge [Unknown]
  - Nausea [Unknown]
  - Loss of personal independence in daily activities [Unknown]
  - Infusion site pain [Not Recovered/Not Resolved]
  - Infusion site discomfort [Unknown]

NARRATIVE: CASE EVENT DATE: 2018
